FAERS Safety Report 21415234 (Version 1)
Quarter: 2022Q4

REPORT INFORMATION
  Report Type: Spontaneous
  Country: US (occurrence: US)
  Receive Date: 20221006
  Receipt Date: 20221006
  Transmission Date: 20230112
  Serious: No
  Sender: FDA-Public Use
  Company Number: US-SA-SAC20220921001068

PATIENT
  Age: 52 Year
  Sex: Female

DRUGS (6)
  1. AUBAGIO [Suspect]
     Active Substance: TERIFLUNOMIDE
     Indication: Multiple sclerosis
     Dosage: UNK
     Route: 065
     Dates: start: 20191015, end: 202203
  2. BACLOFEN [Concomitant]
     Active Substance: BACLOFEN
  3. LYRICA [Concomitant]
     Active Substance: PREGABALIN
  4. TRAMADOL [Concomitant]
     Active Substance: TRAMADOL
  5. PRAMIPEXOLE [Concomitant]
     Active Substance: PRAMIPEXOLE
  6. VITAMIN D NOS [Concomitant]
     Active Substance: VITAMIN D NOS

REACTIONS (3)
  - Muscle spasms [Unknown]
  - Alopecia [Recovered/Resolved]
  - Headache [Unknown]
